FAERS Safety Report 4307063-2 (Version None)
Quarter: 2004Q1

REPORT INFORMATION
  Report Type: 
  Country: None (occurrence: None)
  Receive Date: 20040225
  Receipt Date: 20040217
  Transmission Date: 20041129
  Serious: Yes (Other)
  Sender: FDA-Public Use
  Company Number: STA-AE-04-MTX-049

PATIENT
  Age: 13 Year
  Sex: Female

DRUGS (2)
  1. METHOTREXATE [Suspect]
     Indication: JUVENILE ARTHRITIS
  2. ETANERCEPT (ETANERCEPT, UNSPEC) [Suspect]
     Indication: JUVENILE ARTHRITIS
     Dosage: 12.5 MG 2X PER 1 WK, UNK

REACTIONS (6)
  - DRUG INEFFECTIVE [None]
  - INTERVERTEBRAL DISCITIS [None]
  - PURULENCE [None]
  - SPINAL DISORDER [None]
  - SPONDYLITIS [None]
  - STAPHYLOCOCCAL INFECTION [None]
